FAERS Safety Report 25796092 (Version 1)
Quarter: 2025Q3

REPORT INFORMATION
  Report Type: Spontaneous
  Country: US (occurrence: US)
  Receive Date: 20250912
  Receipt Date: 20250912
  Transmission Date: 20251021
  Serious: No
  Sender: BLUEPRINT MEDICINES
  Company Number: US-Blueprint Medicines Corporation-2025-AER-01984

PATIENT
  Age: 46 Year
  Sex: Male

DRUGS (1)
  1. AYVAKIT [Suspect]
     Active Substance: AVAPRITINIB
     Indication: Neoplasm malignant
     Route: 048
     Dates: start: 20240709

REACTIONS (2)
  - Abdominal pain upper [Unknown]
  - Benign neoplasm [Unknown]
